FAERS Safety Report 4612682-X (Version None)
Quarter: 2005Q1

REPORT INFORMATION
  Report Type: 
  Country: None (occurrence: None)
  Receive Date: 20050316
  Receipt Date: 20050316
  Transmission Date: 20050727
  Serious: Yes (Other)
  Sender: FDA-Public Use
  Company Number: None

PATIENT
  Sex: Male
  Weight: 11.7935 kg

DRUGS (2)
  1. ELIDEL [Suspect]
     Indication: ECZEMA
     Dosage: SKIN APPLICA   TWICE DAILY    TOPICAL
     Route: 061
     Dates: start: 20040410, end: 20040914
  2. PROTOPIC [Suspect]
     Indication: ECZEMA
     Dosage: SKIN APPLICA    TWICE DAILY    TOPICAL
     Route: 061
     Dates: start: 20040915, end: 20050312

REACTIONS (1)
  - NASOPHARYNGITIS [None]
